FAERS Safety Report 17986158 (Version 2)
Quarter: 2020Q3

REPORT INFORMATION
  Report Type: Spontaneous
  Country: KR (occurrence: KR)
  Receive Date: 20200706
  Receipt Date: 20200720
  Transmission Date: 20201103
  Serious: Yes (Other)
  Sender: FDA-Public Use
  Company Number: KR-BAUSCH-BL-2020-018739

PATIENT
  Sex: Female

DRUGS (1)
  1. DERMATOP [Suspect]
     Active Substance: PREDNICARBATE
     Indication: SEBORRHOEA
     Route: 003
     Dates: start: 20200622

REACTIONS (3)
  - Paralysis [Not Recovered/Not Resolved]
  - Lid sulcus deepened [Unknown]
  - Drug hypersensitivity [Unknown]

NARRATIVE: CASE EVENT DATE: 202006
